FAERS Safety Report 8992077 (Version 1)
Quarter: 2012Q4

REPORT INFORMATION
  Report Type: 
  Country: US (occurrence: US)
  Receive Date: 20121231
  Receipt Date: 20121231
  Transmission Date: 20130627
  Serious: Yes (Other)
  Sender: FDA-Public Use
  Company Number: CHPA2012US025580

PATIENT
  Age: 4 Year
  Sex: Female

DRUGS (1)
  1. TRIAMINIC DAY TIME COLD + COUGH [Suspect]
     Indication: RHINORRHOEA
     Dosage: 1 tsp as needed
     Route: 048
     Dates: start: 201102, end: 20121216

REACTIONS (4)
  - Dysuria [Recovered/Resolved]
  - Screaming [Unknown]
  - Off label use [Unknown]
  - Prescribed overdose [Unknown]
